FAERS Safety Report 5943349-3 (Version None)
Quarter: 2008Q4

REPORT INFORMATION
  Report Type: 
  Country: None (occurrence: None)
  Receive Date: 20081105
  Receipt Date: 20081105
  Transmission Date: 20090506
  Serious: Yes (Hospitalization)
  Sender: FDA-Public Use
  Company Number: None

PATIENT
  Age: 65 Year
  Sex: Male
  Weight: 115.67 kg

DRUGS (3)
  1. CITALOPRAM HYDROBROMIDE [Suspect]
     Indication: DEPRESSION
     Dosage: 40 MG EVERY DAY PO
     Route: 048
     Dates: start: 20081007, end: 20081104
  2. CITALOPRAM HYDROBROMIDE [Suspect]
     Indication: PAIN
     Dosage: 40 MG EVERY DAY PO
     Route: 048
     Dates: start: 20081007, end: 20081104
  3. CYCLOBENZAPRINE HCL [Suspect]
     Indication: MUSCLE SPASMS
     Dosage: 10 MG TID PO
     Route: 048
     Dates: start: 20081017, end: 20081104

REACTIONS (10)
  - AGGRESSION [None]
  - AGITATION [None]
  - CONFUSIONAL STATE [None]
  - DELIRIUM [None]
  - DISORIENTATION [None]
  - HEADACHE [None]
  - HYPERREFLEXIA [None]
  - HYPERTENSION [None]
  - SEROTONIN SYNDROME [None]
  - TACHYCARDIA [None]
